FAERS Safety Report 5553710-7 (Version None)
Quarter: 2007Q4

REPORT INFORMATION
  Report Type: 
  Country: None (occurrence: None)
  Receive Date: 20071213
  Receipt Date: 20071206
  Transmission Date: 20080405
  Serious: Yes (Other)
  Sender: FDA-Public Use
  Company Number: PHBS2007NL20575

PATIENT
  Age: 67 Year
  Sex: Female
  Weight: 74 kg

DRUGS (5)
  1. DIOVAN HCT [Suspect]
     Dosage: VALS 160 / HCT 12.5 MG/DAY
     Route: 048
     Dates: start: 20071201
  2. NOVOLOG MIX 70/30 [Concomitant]
     Dosage: 100 IU, UNK
  3. LEVOTHYROXINE SODIUM [Concomitant]
     Dosage: 50 UG, UNK
     Route: 048
  4. PRAVASTATIN SODIUM [Concomitant]
     Dosage: 40 MG, UNK
     Route: 048
  5. FLIXOTIDE [Concomitant]

REACTIONS (4)
  - AGGRESSION [None]
  - DEPRESSED MOOD [None]
  - DIZZINESS [None]
  - JOINT STIFFNESS [None]
